FAERS Safety Report 10360366 (Version 3)
Quarter: 2014Q4

REPORT INFORMATION
  Report Type: Spontaneous
  Country: US (occurrence: US)
  Receive Date: 20140804
  Receipt Date: 20141117
  Transmission Date: 20150528
  Serious: Yes (Other)
  Sender: FDA-Public Use
  Company Number: US-BAYER-2014-115865

PATIENT
  Age: 39 Year
  Sex: Female
  Weight: 68.27 kg

DRUGS (2)
  1. MIRENA [Suspect]
     Active Substance: LEVONORGESTREL
     Indication: MENSTRUAL CYCLE MANAGEMENT
  2. MIRENA [Suspect]
     Active Substance: LEVONORGESTREL
     Indication: CONTRACEPTION
     Dosage: 20 MCG/24HR, CONT
     Route: 015
     Dates: start: 20120203, end: 20140828

REACTIONS (3)
  - Drug ineffective [None]
  - Ectopic pregnancy with contraceptive device [Recovered/Resolved]
  - Pain [Recovered/Resolved]

NARRATIVE: CASE EVENT DATE: 2014
